FAERS Safety Report 6710684-0 (Version None)
Quarter: 2010Q2

REPORT INFORMATION
  Report Type: 
  Country: None (occurrence: None)
  Receive Date: 20100504
  Receipt Date: 20100504
  Transmission Date: 20101027
  Serious: Yes (Other)
  Sender: FDA-Public Use
  Company Number: None

PATIENT
  Age: 9 Month
  Sex: Male
  Weight: 9.5255 kg

DRUGS (2)
  1. CHILDREN'S MOTRIN [Suspect]
     Indication: PAIN
     Dosage: 1/2 TSP EVERY 6-8 HOURS PO
     Route: 048
     Dates: start: 20100414, end: 20100414
  2. CHILDREN'S MOTRIN [Suspect]
     Indication: PYREXIA
     Dosage: 1/2 TSP EVERY 6-8 HOURS PO
     Route: 048
     Dates: start: 20100414, end: 20100414

REACTIONS (10)
  - ABNORMAL DREAMS [None]
  - CRYING [None]
  - FEAR [None]
  - FEELING ABNORMAL [None]
  - MOVEMENT DISORDER [None]
  - MUSCULOSKELETAL STIFFNESS [None]
  - PAIN [None]
  - PRODUCT QUALITY ISSUE [None]
  - SOMNOLENCE [None]
  - TREMOR [None]
